FAERS Safety Report 7888066-8 (Version None)
Quarter: 2011Q4

REPORT INFORMATION
  Report Type: 
  Country: None (occurrence: None)
  Receive Date: 20111103
  Receipt Date: 20111026
  Transmission Date: 20120403
  Serious: Yes (Hospitalization, Other)
  Sender: FDA-Public Use
  Company Number: US-US-EMD SERONO, INC.-7062426

PATIENT
  Sex: Female

DRUGS (4)
  1. GABAPENTIN [Concomitant]
  2. HYDROCODONE BITARTRATE [Concomitant]
     Indication: ARTHRALGIA
  3. REBIF [Suspect]
     Indication: PRODUCT USED FOR UNKNOWN INDICATION
     Route: 058
     Dates: start: 20090330
  4. AMITRIPTYLINE HCL [Concomitant]

REACTIONS (5)
  - BONE DISORDER [None]
  - ARTHRITIS [None]
  - INJECTION SITE ERYTHEMA [None]
  - CATARACT [None]
  - OSTEONECROSIS [None]
